FAERS Safety Report 4783016-5 (Version None)
Quarter: 2005Q3

REPORT INFORMATION
  Report Type: 
  Country: None (occurrence: None)
  Receive Date: 20050927
  Receipt Date: 20050919
  Transmission Date: 20060218
  Serious: No
  Sender: FDA-Public Use
  Company Number: USA-2004-0015661

PATIENT
  Age: 73 Year
  Sex: Female

DRUGS (2)
  1. OXYCONTIN [Suspect]
     Indication: PAIN
     Dosage: 10 MG, BID, ORAL
     Route: 048
     Dates: end: 20050801
  2. PREDNISONE [Concomitant]

REACTIONS (6)
  - ASTHENIA [None]
  - BRADYARRHYTHMIA [None]
  - BRADYCARDIA [None]
  - DEPRESSION [None]
  - HYPOVENTILATION [None]
  - OEDEMA PERIPHERAL [None]
